FAERS Safety Report 11315707 (Version 1)
Quarter: 2015Q3

REPORT INFORMATION
  Report Type: Spontaneous
  Country: US (occurrence: None)
  Receive Date: 20150724
  Receipt Date: 20150724
  Transmission Date: 20151125
  Serious: Yes (Death, Hospitalization)
  Sender: FDA-Public Use
  Company Number: CPI 6989

PATIENT
  Age: 50 Year
  Sex: Male

DRUGS (8)
  1. N-ACETYLCYSTEINE [Suspect]
     Active Substance: ACETYLCYSTEINE
     Route: 042
  2. DOXYCYCLINE. [Concomitant]
     Active Substance: DOXYCYCLINE
  3. METHYLPREDNISOLONE. [Concomitant]
     Active Substance: METHYLPREDNISOLONE
  4. CEFTAZIDIME. [Concomitant]
     Active Substance: CEFTAZIDIME
  5. PLATELETS [Concomitant]
     Active Substance: HUMAN PLATELET, ALLOGENIC
  6. HEMODIALYSIS [Concomitant]
     Active Substance: DEVICE
  7. CIRPROFLOXACIN [Concomitant]
  8. FRESH FROZEN PLASMA [Concomitant]
     Active Substance: HUMAN PLASMA

REACTIONS (12)
  - Hepatic function abnormal [None]
  - Serum ferritin increased [None]
  - Arrhythmia [None]
  - Respiratory distress [None]
  - Renal impairment [None]
  - Blood lactic acid increased [None]
  - Simplex virus test positive [None]
  - Left ventricular failure [None]
  - Condition aggravated [None]
  - Multi-organ disorder [None]
  - Histiocytosis haematophagic [None]
  - Pulmonary oedema [None]

NARRATIVE: CASE EVENT DATE: 2015
